FAERS Safety Report 6717935-7 (Version None)
Quarter: 2010Q2

REPORT INFORMATION
  Report Type: 
  Country: None (occurrence: None)
  Receive Date: 20100510
  Receipt Date: 20100427
  Transmission Date: 20101027
  Serious: Yes (Hospitalization, Other)
  Sender: FDA-Public Use
  Company Number: PHHY2010GB10994

PATIENT
  Sex: Female

DRUGS (3)
  1. CLOZARIL [Suspect]
     Indication: SCHIZOPHRENIA
     Dosage: UNK
     Dates: start: 20000815
  2. ARIPIPRAZOLE [Concomitant]
     Dosage: 5 MG
     Route: 048
  3. INSULIN [Concomitant]

REACTIONS (3)
  - DIABETES MELLITUS [None]
  - SEPSIS [None]
  - URINARY TRACT INFECTION [None]
